FAERS Safety Report 13965466 (Version 1)
Quarter: 2017Q3

REPORT INFORMATION
  Report Type: Spontaneous
  Country: US (occurrence: US)
  Receive Date: 20170913
  Receipt Date: 20170913
  Transmission Date: 20171128
  Serious: Yes (Other)
  Sender: FDA-Public Use
  Company Number: US-MALLINCKRODT-T201703690

PATIENT
  Age: 9 Month
  Sex: Female
  Weight: 8 kg

DRUGS (1)
  1. H.P. ACTHAR [Suspect]
     Active Substance: CORTICOTROPIN
     Indication: INFANTILE SPASMS
     Dosage: 0.5ML, (TAPERING DOSE), BID
     Route: 030
     Dates: start: 20170829

REACTIONS (1)
  - Urinary tract infection neonatal [Not Recovered/Not Resolved]

NARRATIVE: CASE EVENT DATE: 20170904
